FAERS Safety Report 13084249 (Version 1)
Quarter: 2017Q1

REPORT INFORMATION
  Report Type: Spontaneous
  Country: US (occurrence: US)
  Receive Date: 20170101
  Receipt Date: 20170101
  Transmission Date: 20170428
  Serious: No
  Sender: FDA-Public Use
  Company Number: None

PATIENT
  Age: 34 Year
  Sex: Female
  Weight: 81 kg

DRUGS (5)
  1. VOL-PLUS [Concomitant]
     Active Substance: .ALPHA.-TOCOPHEROL ACETATE, DL-\.BETA.-CAROTENE\ASCORBIC ACID\CALCIUM SULFATE\CHOLECALCIFEROL\CUPRIC OXIDE\CYANOCOBALAMIN\FERROUS FUMARATE\FOLIC ACID\NIACINAMIDE\PYRIDOXINE HYDROCHLORIDE\RIBOFLAVIN\THIAMINE MONONITRATE\VITAMIN A ACETATE\ZINC OXIDE
  2. BUPROPION HCL [Concomitant]
     Active Substance: BUPROPION HYDROCHLORIDE
  3. STELARA [Concomitant]
     Active Substance: USTEKINUMAB
  4. CIMZIA [Suspect]
     Active Substance: CERTOLIZUMAB PEGOL
     Indication: CROHN^S DISEASE
     Dosage: QUANTITY:2 INJECTION(S);OTHER FREQUENCY:ONCE A MONTH; SUBCUTANEOUS?
     Route: 058
  5. BUPROPION HCL ER (XL) [Concomitant]

REACTIONS (5)
  - Therapeutic response unexpected [None]
  - Gastric ulcer [None]
  - Skin ulcer [None]
  - Alopecia [None]
  - Psoriasis [None]

NARRATIVE: CASE EVENT DATE: 20151123
